FAERS Safety Report 8145592-4 (Version None)
Quarter: 2012Q1

REPORT INFORMATION
  Report Type: 
  Country: None (occurrence: None)
  Receive Date: 20120217
  Receipt Date: 20110415
  Transmission Date: 20120608
  Serious: No
  Sender: FDA-Public Use
  Company Number: US-ABBOTT-11P-163-0720518-00

PATIENT
  Sex: Male
  Weight: 84.444 kg

DRUGS (4)
  1. NISOLDIPINE [Suspect]
     Indication: BLOOD PRESSURE
     Dosage: 34 MG
     Dates: start: 20100401
  2. SOTALOL HCL [Concomitant]
     Indication: HEART RATE
  3. SIMCOR [Suspect]
     Indication: PRODUCT USED FOR UNKNOWN INDICATION
     Dates: start: 20110406
  4. PLAVIX [Concomitant]
     Indication: PRODUCT USED FOR UNKNOWN INDICATION

REACTIONS (5)
  - HYPOTENSION [None]
  - BURNING SENSATION [None]
  - LOSS OF CONSCIOUSNESS [None]
  - ASTHENIA [None]
  - FATIGUE [None]
